FAERS Safety Report 4592530-7 (Version None)
Quarter: 2005Q1

REPORT INFORMATION
  Report Type: 
  Country: None (occurrence: None)
  Receive Date: 20050228
  Receipt Date: 20050215
  Transmission Date: 20050727
  Serious: Yes (Death)
  Sender: FDA-Public Use
  Company Number: CA-JNJFOC-20050202246

PATIENT
  Sex: Female

DRUGS (14)
  1. CAELYX [Suspect]
     Route: 042
  2. CAELYX [Suspect]
     Route: 042
  3. CAELYX [Suspect]
     Indication: BREAST CANCER
     Route: 042
  4. AROMASIN [Concomitant]
  5. SYNTHROID [Concomitant]
     Route: 049
  6. PANTOPRAZOLE SODIUM [Concomitant]
  7. RESTORIL [Concomitant]
  8. K-DUR 10 [Concomitant]
     Route: 049
  9. FUROSEMIDE [Concomitant]
  10. COLACE [Concomitant]
     Route: 049
  11. SENOKOT [Concomitant]
     Route: 049
  12. PREDNISONE [Concomitant]
  13. COUMADIN [Concomitant]
     Route: 049
  14. VENTOLIN [Concomitant]
     Route: 055

REACTIONS (3)
  - CARDIAC FAILURE [None]
  - DEATH [None]
  - PLEURAL EFFUSION [None]
